FAERS Safety Report 20389347 (Version 2)
Quarter: 2022Q1

REPORT INFORMATION
  Report Type: Spontaneous
  Country: RO (occurrence: RO)
  Receive Date: 20220128
  Receipt Date: 20220209
  Transmission Date: 20220423
  Serious: Yes (Hospitalization)
  Sender: FDA-Public Use
  Company Number: RO-PMCS-2022000035

PATIENT
  Age: 37 Year
  Sex: Male

DRUGS (3)
  1. LORAZEPAM [Suspect]
     Active Substance: LORAZEPAM
     Indication: Product used for unknown indication
     Route: 065
  2. RISPERIDONE [Suspect]
     Active Substance: RISPERIDONE
     Indication: Product used for unknown indication
     Route: 065
  3. TIAPRIDE [Suspect]
     Active Substance: TIAPRIDE
     Indication: Product used for unknown indication
     Route: 065

REACTIONS (2)
  - Behaviour disorder [Unknown]
  - Psychomotor hyperactivity [Unknown]
